FAERS Safety Report 16580191 (Version 1)
Quarter: 2019Q3

REPORT INFORMATION
  Report Type: Spontaneous
  Country: AU (occurrence: AU)
  Receive Date: 20190716
  Receipt Date: 20190716
  Transmission Date: 20191004
  Serious: Yes (Other)
  Sender: FDA-Public Use
  Company Number: AU-SA-2019SA187458

PATIENT
  Age: 33 Year
  Sex: Male

DRUGS (2)
  1. LEMTRADA [Suspect]
     Active Substance: ALEMTUZUMAB
     Dosage: UNK
     Route: 041
     Dates: start: 20180507, end: 20180509
  2. LEMTRADA [Suspect]
     Active Substance: ALEMTUZUMAB
     Dosage: UNK
     Route: 041
     Dates: start: 20170316, end: 20170320

REACTIONS (5)
  - Rectal polyp [Unknown]
  - Inflammation [Unknown]
  - Haemorrhage [Unknown]
  - Anal fissure [Unknown]
  - Anogenital dysplasia [Unknown]
